FAERS Safety Report 8418582-1 (Version None)
Quarter: 2012Q2

REPORT INFORMATION
  Report Type: 
  Country: None (occurrence: None)
  Receive Date: 20120531
  Receipt Date: 20100420
  Transmission Date: 20120825
  Serious: Yes (Other)
  Sender: FDA-Public Use
  Company Number: 2010JP001648

PATIENT
  Age: 64 Year
  Sex: Male
  Weight: 59 kg

DRUGS (7)
  1. MYSLEE (ZOLIPDEM) [Concomitant]
  2. SELBEX (TEPRENONE) [Concomitant]
  3. HARNAL (TAMSULOSIN) ORODISPERSIBLE CR TABLET [Concomitant]
  4. VFEND [Concomitant]
  5. LAC B (LACTOBACILLUS BIFIDUS, LYOPHILIZED) [Concomitant]
  6. FUNGUARD (MICAFUNGIN) INJECTION [Suspect]
     Indication: BRONCHOPULMONARY ASPERGILLOSIS
     Dosage: 150 MG, UID/QD, IV DRIP; 150 MG, /D, IV DRIP
     Route: 041
     Dates: start: 20100108, end: 20100205
  7. FUNGUARD (MICAFUNGIN) INJECTION [Suspect]
     Indication: BRONCHOPULMONARY ASPERGILLOSIS
     Dosage: 150 MG, UID/QD, IV DRIP; 150 MG, /D, IV DRIP
     Route: 041
     Dates: start: 20100308, end: 20100311

REACTIONS (2)
  - HENOCH-SCHONLEIN PURPURA [None]
  - PRURITUS [None]
